FAERS Safety Report 13191956 (Version 3)
Quarter: 2019Q4

REPORT INFORMATION
  Report Type: Report from Study
  Country: BR (occurrence: CO)
  Receive Date: 20170207
  Receipt Date: 20191104
  Transmission Date: 20200122
  Serious: Yes (Other)
  Sender: FDA-Public Use
  Company Number: CO-ASTELLAS-2017US004372

PATIENT
  Age: 53 Year
  Sex: Female
  Weight: 50 kg

DRUGS (4)
  1. TACROLIMUS. [Suspect]
     Active Substance: TACROLIMUS
     Indication: LIVER TRANSPLANT
     Route: 048
     Dates: start: 20090105
  2. URSACOL [Concomitant]
     Active Substance: URSODIOL
     Indication: BLOOD BILIRUBIN
     Route: 048
     Dates: start: 20091105
  3. TACROLIMUS. [Suspect]
     Active Substance: TACROLIMUS
     Route: 048
     Dates: start: 20100101
  4. MYCOPHENOLATE [Concomitant]
     Active Substance: MYCOPHENOLIC ACID
     Indication: IMMUNOSUPPRESSION
     Route: 048
     Dates: start: 20091105

REACTIONS (8)
  - Headache [Not Recovered/Not Resolved]
  - Liver transplant rejection [Not Recovered/Not Resolved]
  - Dry mouth [Not Recovered/Not Resolved]
  - Liver function test abnormal [Recovering/Resolving]
  - Scleroderma [Not Recovered/Not Resolved]
  - Abdominal pain upper [Not Recovered/Not Resolved]
  - Transaminases increased [Unknown]
  - Blood alkaline phosphatase increased [Unknown]

NARRATIVE: CASE EVENT DATE: 20161101
